FAERS Safety Report 7235853-5 (Version None)
Quarter: 2011Q1

REPORT INFORMATION
  Report Type: 
  Country: None (occurrence: None)
  Receive Date: 20110120
  Receipt Date: 20110112
  Transmission Date: 20110831
  Serious: Yes (Hospitalization)
  Sender: FDA-Public Use
  Company Number: JP-ROCHE-749450

PATIENT
  Sex: Female
  Weight: 65 kg

DRUGS (11)
  1. PYDOXAL [Concomitant]
     Route: 048
     Dates: start: 20101019
  2. XELODA [Suspect]
     Indication: BREAST CANCER METASTATIC
     Dosage: XELODA 300,
     Route: 048
     Dates: start: 20100916
  3. GASTER D [Concomitant]
     Route: 048
     Dates: start: 20100831
  4. LAXOBERON [Concomitant]
     Dosage: FORM: PERORAL LIQUID PREPARATION
     Route: 048
  5. NOVORAPID [Concomitant]
     Dosage: NOVORAPID MIX (INSULIN ASPARTATE (GENETICAL RECOMBINATION))
     Route: 058
     Dates: start: 20101208
  6. KETOPROFEN [Concomitant]
     Dosage: FORM: TAPE
     Route: 062
     Dates: start: 20101018
  7. LEVEMIR [Concomitant]
     Route: 058
     Dates: start: 20101209
  8. ALOSENN [Concomitant]
     Dosage: FORM: GRANULATED POWDER
     Route: 048
     Dates: start: 20101209
  9. URSO 250 [Concomitant]
     Route: 048
     Dates: start: 20051212
  10. MYSLEE [Concomitant]
     Route: 048
     Dates: start: 20100831
  11. LOXONIN [Concomitant]
     Route: 048
     Dates: start: 20100831

REACTIONS (5)
  - GENITAL HAEMORRHAGE [None]
  - HYPOAESTHESIA [None]
  - STOMATITIS [None]
  - DIABETES MELLITUS [None]
  - NAUSEA [None]
